FAERS Safety Report 5846210-8 (Version None)
Quarter: 2008Q3

REPORT INFORMATION
  Report Type: 
  Country: None (occurrence: None)
  Receive Date: 20080813
  Receipt Date: 20080609
  Transmission Date: 20090109
  Serious: No
  Sender: FDA-Public Use
  Company Number: ADE2008-0227

PATIENT
  Age: 71 Year
  Sex: Male

DRUGS (5)
  1. FLUOXETINE [Suspect]
     Indication: DEPRESSION
     Dosage: 20 MG, QD,
  2. ALLOPURINOL [Concomitant]
  3. AMITRIPTYLINE HCL [Concomitant]
  4. FENTANYL-25 [Concomitant]
  5. SIMVASTATIN [Concomitant]

REACTIONS (14)
  - AGITATION [None]
  - CEREBROVASCULAR DISORDER [None]
  - CLONUS [None]
  - CONFUSIONAL STATE [None]
  - DYSKINESIA [None]
  - DYSPHEMIA [None]
  - GAIT DISTURBANCE [None]
  - HYPERTONIA [None]
  - METABOLIC DISORDER [None]
  - MUSCULOSKELETAL STIFFNESS [None]
  - RADIATION INJURY [None]
  - SEROTONIN SYNDROME [None]
  - STATUS EPILEPTICUS [None]
  - TREMOR [None]
